FAERS Safety Report 24545384 (Version 1)
Quarter: 2024Q4

REPORT INFORMATION
  Report Type: Spontaneous
  Country: US (occurrence: US)
  Receive Date: 20241024
  Receipt Date: 20241024
  Transmission Date: 20250115
  Serious: Yes (Life-Threatening, Hospitalization, Other)
  Sender: GRANULES PHARMACEUTICALS INC
  Company Number: US-GRANULES-US-2024GRALIT00488

PATIENT
  Age: 62 Year
  Sex: Male

DRUGS (1)
  1. METFORMIN HYDROCHLORIDE [Suspect]
     Active Substance: METFORMIN HYDROCHLORIDE
     Indication: Diabetes mellitus
     Route: 065

REACTIONS (4)
  - Distributive shock [Recovering/Resolving]
  - Toxicity to various agents [Recovering/Resolving]
  - Lactic acidosis [Recovering/Resolving]
  - Respiratory failure [Recovering/Resolving]
